FAERS Safety Report 25173698 (Version 1)
Quarter: 2025Q2

REPORT INFORMATION
  Report Type: Report from Study
  Country: GB (occurrence: GB)
  Receive Date: 20250408
  Receipt Date: 20250408
  Transmission Date: 20250716
  Serious: Yes (Other)
  Sender: NOVARTIS
  Company Number: GB-002147023-NVSC2024GB077322

PATIENT
  Sex: Female

DRUGS (2)
  1. MAYZENT [Suspect]
     Active Substance: SIPONIMOD
     Indication: Secondary progressive multiple sclerosis
     Dosage: UNK UNK, QD
     Route: 048
     Dates: start: 20240410
  2. MAYZENT [Suspect]
     Active Substance: SIPONIMOD
     Dosage: UNK, QD (1ST TITRATION DOSE)
     Route: 048
     Dates: start: 20240411

REACTIONS (8)
  - Hypertension [Unknown]
  - Invasive ductal breast carcinoma [Recovering/Resolving]
  - Arthralgia [Unknown]
  - Balance disorder [Unknown]
  - Heart rate decreased [Unknown]
  - Somnolence [Not Recovered/Not Resolved]
  - Fatigue [Not Recovered/Not Resolved]
  - Contusion [Unknown]
